FAERS Safety Report 8239774-0 (Version None)
Quarter: 2012Q1

REPORT INFORMATION
  Report Type: 
  Country: None (occurrence: None)
  Receive Date: 20120328
  Receipt Date: 20120319
  Transmission Date: 20120608
  Serious: Yes (Other)
  Sender: FDA-Public Use
  Company Number: CA-JNJFOC-20120309940

PATIENT
  Sex: Female
  Weight: 66 kg

DRUGS (2)
  1. UNKNOWN MEDICATION [Concomitant]
     Indication: MIGRAINE
     Route: 065
  2. REMICADE [Suspect]
     Indication: COLITIS ULCERATIVE
     Route: 042
     Dates: start: 20110216

REACTIONS (1)
  - EYE SWELLING [None]
